FAERS Safety Report 6648338-1 (Version None)
Quarter: 2010Q1

REPORT INFORMATION
  Report Type: 
  Country: None (occurrence: None)
  Receive Date: 20100324
  Receipt Date: 20100312
  Transmission Date: 20100710
  Serious: Yes (Other)
  Sender: FDA-Public Use
  Company Number: CN-ROCHE-690790

PATIENT
  Sex: Male
  Weight: 69 kg

DRUGS (2)
  1. MYCOPHENOLATE MOFETIL [Suspect]
     Indication: RENAL TRANSPLANT
     Dosage: 1000 MG IN THE MORNING AND 1000 MG IN THE EVENING
     Route: 048
     Dates: start: 20051116
  2. CYCLOSPORINE [Concomitant]
     Indication: RENAL TRANSPLANT
     Dosage: TRADE NAME REPORTED AS JINDEMING, 1750 MG IN THE MORNING AND EVENING RESPECTIVELY.
     Route: 048
     Dates: start: 20051116

REACTIONS (1)
  - OSTEONECROSIS [None]
